APPROVED DRUG PRODUCT: CLARINEX
Active Ingredient: DESLORATADINE
Strength: 0.5MG/ML **Federal Register determination that product was not discontinued or withdrawn for safety or effectiveness reasons**
Dosage Form/Route: SOLUTION;ORAL
Application: N021300 | Product #001
Applicant: ORGANON LLC
Approved: Sep 1, 2004 | RLD: Yes | RS: No | Type: DISCN